FAERS Safety Report 15682201 (Version 6)
Quarter: 2020Q1

REPORT INFORMATION
  Report Type: Spontaneous
  Country: US (occurrence: US)
  Receive Date: 20181203
  Receipt Date: 20200331
  Transmission Date: 20200409
  Serious: No
  Sender: FDA-Public Use
  Company Number: US-PFIZER INC-2018496351

PATIENT
  Age: 74 Year
  Sex: Female

DRUGS (5)
  1. PROCARDIA XL [Suspect]
     Active Substance: NIFEDIPINE
     Dosage: 90 MG, DAILY (IN THE MORNING)
  2. PROCARDIA XL [Suspect]
     Active Substance: NIFEDIPINE
     Dosage: 30 MG, DAILY (BEFORE BED)
  3. PROCARDIA XL [Suspect]
     Active Substance: NIFEDIPINE
     Dosage: 30 MG, DAILY
     Route: 048
  4. PROCARDIA XL [Suspect]
     Active Substance: NIFEDIPINE
     Dosage: 120 MG, DAILY (90 MG PLUS 30 MG DAILY)
  5. PROCARDIA XL [Suspect]
     Active Substance: NIFEDIPINE
     Dosage: 90 MG, 1X/DAY [EVERY EVENING]
     Route: 048

REACTIONS (3)
  - Drug intolerance [Unknown]
  - Off label use [Unknown]
  - Product use issue [Unknown]
